FAERS Safety Report 16558094 (Version 1)
Quarter: 2019Q3

REPORT INFORMATION
  Report Type: Spontaneous
  Country: US (occurrence: US)
  Receive Date: 20190710
  Receipt Date: 20190710
  Transmission Date: 20191004
  Serious: Yes (Other)
  Sender: FDA-Public Use
  Company Number: None

PATIENT
  Age: 21 Year
  Sex: Female
  Weight: 59.1 kg

DRUGS (2)
  1. MAGNESIUM SULFATE. [Suspect]
     Active Substance: MAGNESIUM SULFATE
  2. MAGNESIUM SULFATE. [Suspect]
     Active Substance: MAGNESIUM SULFATE

REACTIONS (10)
  - Exposure during pregnancy [None]
  - Abdominal pain [None]
  - Blood magnesium increased [None]
  - Vomiting [None]
  - Device infusion issue [None]
  - Nausea [None]
  - Device malfunction [None]
  - Overdose [None]
  - Feeling hot [None]
  - Recalled product [None]

NARRATIVE: CASE EVENT DATE: 20190516
